FAERS Safety Report 11796557 (Version 2)
Quarter: 2015Q4

REPORT INFORMATION
  Report Type: Spontaneous
  Country: US (occurrence: US)
  Receive Date: 20151203
  Receipt Date: 20151211
  Transmission Date: 20160305
  Serious: Yes (Disabling)
  Sender: FDA-Public Use
  Company Number: US-DRREDDYS-USA/USA/15/0054423

PATIENT
  Sex: Male

DRUGS (1)
  1. LEVOFLOXACIN TABLETS 500 MG [Suspect]
     Active Substance: LEVOFLOXACIN
     Indication: NASOPHARYNGITIS
     Route: 048
     Dates: start: 20150806

REACTIONS (4)
  - Vertigo [Unknown]
  - Contusion [Unknown]
  - Balance disorder [Unknown]
  - Gait disturbance [Unknown]
